FAERS Safety Report 9483068 (Version 1)
Quarter: 2013Q3

REPORT INFORMATION
  Report Type: Spontaneous
  Country: US (occurrence: US)
  Receive Date: 20130828
  Receipt Date: 20130828
  Transmission Date: 20140515
  Serious: Yes (Other)
  Sender: FDA-Public Use
  Company Number: US-AMGEN-US083223

PATIENT
  Age: 75 Year
  Sex: Female
  Weight: 70.3 kg

DRUGS (6)
  1. ENBREL [Suspect]
     Indication: RHEUMATOID ARTHRITIS
     Dosage: 25 MG, 2 TIMES/WK
     Route: 058
     Dates: start: 20030201
  2. CARVEDILOL [Concomitant]
  3. IRBESARTAN [Concomitant]
  4. CITALOPRAM [Concomitant]
  5. FEXOFENADINE HYDROCHLORIDE [Concomitant]
  6. CELECOXIB [Concomitant]

REACTIONS (3)
  - Cardiac output decreased [Unknown]
  - Condition aggravated [Unknown]
  - Dyspnoea [Unknown]
